FAERS Safety Report 4560695-9 (Version None)
Quarter: 2005Q1

REPORT INFORMATION
  Report Type: 
  Country: None (occurrence: None)
  Receive Date: 20050126
  Receipt Date: 20050113
  Transmission Date: 20050727
  Serious: Yes (Other)
  Sender: FDA-Public Use
  Company Number: US-JNJFOC-20050103606

PATIENT
  Sex: Female
  Weight: 49.9 kg

DRUGS (3)
  1. INFLIXIMAB [Suspect]
     Indication: RHEUMATOID ARTHRITIS
     Route: 042
  2. ARAVA [Concomitant]
  3. CELEBREX [Concomitant]

REACTIONS (1)
  - LUPUS-LIKE SYNDROME [None]
